FAERS Safety Report 12649780 (Version 1)
Quarter: 2016Q3

REPORT INFORMATION
  Report Type: Spontaneous
  Country: US (occurrence: US)
  Receive Date: 20160812
  Receipt Date: 20160812
  Transmission Date: 20161109
  Serious: No
  Sender: FDA-Public Use
  Company Number: US-AQUA PHARMACEUTICALS-2016AQU000111

PATIENT
  Sex: Female
  Weight: 49.89 kg

DRUGS (3)
  1. BENZOYL PEROXIDE. [Concomitant]
     Active Substance: BENZOYL PEROXIDE
     Indication: ACNE
  2. ACTICLATE [Suspect]
     Active Substance: DOXYCYCLINE HYCLATE
     Indication: ACNE
     Dosage: 100 MG, BID
     Route: 048
     Dates: start: 201602
  3. ANTIBIOTICS [Concomitant]
     Active Substance: UNSPECIFIED INGREDIENT
     Indication: ACNE

REACTIONS (2)
  - Abdominal discomfort [Not Recovered/Not Resolved]
  - Drug ineffective [Not Recovered/Not Resolved]

NARRATIVE: CASE EVENT DATE: 2016
